FAERS Safety Report 7262232-7 (Version None)
Quarter: 2011Q1

REPORT INFORMATION
  Report Type: 
  Country: None (occurrence: None)
  Receive Date: 20110130
  Receipt Date: 20101124
  Transmission Date: 20110831
  Serious: No
  Sender: FDA-Public Use
  Company Number: US-ABBOTT-10P-163-0687648-00

PATIENT
  Age: 49 Year
  Sex: Male

DRUGS (3)
  1. TRICOR [Concomitant]
     Indication: BLOOD CHOLESTEROL INCREASED
  2. ATENOLOL [Concomitant]
     Indication: AORTIC VALVE STENOSIS
  3. HUMIRA [Suspect]
     Indication: CROHN'S DISEASE
     Dates: start: 20100812

REACTIONS (1)
  - ABDOMINAL PAIN [None]
